FAERS Safety Report 9783564 (Version 1)
Quarter: 2013Q4

REPORT INFORMATION
  Report Type: Spontaneous
  Country: US (occurrence: None)
  Receive Date: 20131223
  Receipt Date: 20131223
  Transmission Date: 20140711
  Serious: Yes (Other)
  Sender: FDA-Public Use
  Company Number: AUR-APL-2013-10666

PATIENT
  Age: 51 Year
  Sex: Male

DRUGS (6)
  1. LAMOTRIGINE [Suspect]
     Indication: CONVULSION
  2. LEVETIRACETAM [Suspect]
     Indication: CONVULSION
     Dosage: 8000MG (2000MG, 4 IN 1)
  3. LORAZEPAM [Suspect]
     Indication: PRODUCT USED FOR UNKNOWN INDICATION
     Dosage: 2MG EVERY 4 H AND PRN
  4. LACOSAMIDE [Suspect]
     Indication: CONVULSION
     Dosage: 500MG (250MG, 2 IN 1 D)
  5. CLONAZEPAM [Suspect]
     Indication: CONVULSION
  6. FELBATOL [Suspect]
     Indication: CONVULSION
     Dosage: 4500 MG (1500MG, 3 IN 1)

REACTIONS (6)
  - Gait disturbance [None]
  - Hemiparesis [None]
  - Drug ineffective [None]
  - Convulsion [None]
  - Altered state of consciousness [None]
  - Condition aggravated [None]
